FAERS Safety Report 18941894 (Version 1)
Quarter: 2021Q1

REPORT INFORMATION
  Report Type: Spontaneous
  Country: US (occurrence: US)
  Receive Date: 20210225
  Receipt Date: 20210225
  Transmission Date: 20210420
  Serious: Yes (Other)
  Sender: FDA-Public Use
  Company Number: US-TEVA-2021-US-1882897

PATIENT
  Age: 86 Year
  Sex: Male

DRUGS (2)
  1. ACETAMINOPHEN. [Concomitant]
     Active Substance: ACETAMINOPHEN
     Indication: PRODUCT USED FOR UNKNOWN INDICATION
     Dosage: LONGSTANDING TREATMENT
     Route: 065
  2. NITROFURANTOIN. [Suspect]
     Active Substance: NITROFURANTOIN
     Indication: URINARY TRACT INFECTION
     Dosage: THE MAN WAS COMPLETING THE SECOND COURSE OF NITROFURANTOIN AT THE TIME OF PRESENTATION.
     Route: 065

REACTIONS (2)
  - Liver injury [Recovering/Resolving]
  - Porphyria non-acute [Recovered/Resolved]
